FAERS Safety Report 21386137 (Version 1)
Quarter: 2022Q3

REPORT INFORMATION
  Report Type: Spontaneous
  Country: US (occurrence: None)
  Receive Date: 20220926
  Receipt Date: 20220926
  Transmission Date: 20221027
  Serious: No
  Sender: FDA-Public Use
  Company Number: None

PATIENT
  Sex: Female

DRUGS (1)
  1. DEFEROXAMINE MESYLATE [Suspect]
     Active Substance: DEFEROXAMINE MESYLATE
     Indication: Sickle cell disease
     Dosage: OTHER QUANTITY : 1045MG(11ML);?OTHER FREQUENCY : OVER 8HR MON-FRI;?
     Route: 058
     Dates: start: 20210104

REACTIONS (2)
  - Pain [None]
  - Speech disorder [None]
